FAERS Safety Report 8180650-X (Version None)
Quarter: 2012Q1

REPORT INFORMATION
  Report Type: 
  Country: None (occurrence: None)
  Receive Date: 20120302
  Receipt Date: 20120223
  Transmission Date: 20120608
  Serious: Yes (Hospitalization)
  Sender: FDA-Public Use
  Company Number: CA-ROCHE-751744

PATIENT
  Sex: Female
  Weight: 60 kg

DRUGS (20)
  1. IBUPROFEN (ADVIL) [Concomitant]
     Dates: start: 20000101, end: 20110113
  2. NEUPOGEN [Concomitant]
     Dosage: TDD: 5 DOSES EVERY OTHER DAY
     Dates: start: 20110114, end: 20110423
  3. ZOFRAN [Concomitant]
     Dates: start: 20110210, end: 20110211
  4. ACETAMINOPHEN [Concomitant]
     Dates: start: 19750101, end: 20110112
  5. ZOFRAN [Concomitant]
     Dates: start: 20091229, end: 20110413
  6. DOCETAXEL [Suspect]
     Route: 042
  7. CARBOPLATIN [Suspect]
     Dosage: LAST DOSE PRIOR TO SAE ON 03 FEB 2011
     Route: 042
  8. OMNARIS [Concomitant]
     Dates: start: 20001209, end: 20101222
  9. PERTUZUMAB [Suspect]
     Dosage: LAST DOSE PRIOR TO SAE ON 03 FEB 2011
     Route: 042
  10. HERCEPTIN [Suspect]
     Indication: BREAST CANCER
     Dosage: LOADING DOSE;LAST DOSE PRIOR TO SAE:22 DEC 2010
     Route: 042
  11. HERCEPTIN [Suspect]
     Dosage: DOSE FORM INFUSION, LAST DOSE PRIOR TO SAE ON 03 FEB 2011
     Route: 042
  12. PERTUZUMAB [Suspect]
     Indication: BREAST CANCER
     Dosage: LOADING DOSE, LAST DOSE PRIOR TO SAE:22 DEC 2010
     Route: 042
  13. PERCOCET [Concomitant]
     Dates: start: 20101207, end: 20101222
  14. CARBOPLATIN [Suspect]
     Route: 042
  15. IMOVANE [Concomitant]
  16. ATIVAN [Concomitant]
     Dates: start: 20070101, end: 20110202
  17. ADVAIR DISKUS 100/50 [Concomitant]
     Dosage: TDD: 4 PUFFS
     Dates: start: 20101209, end: 20101222
  18. CARBOPLATIN [Suspect]
     Indication: BREAST CANCER
     Dosage: LAST DOSE PRIOR TO SAE 22 DEC 2010
     Route: 042
  19. ALBUTEROL [Concomitant]
     Dosage: TDD: 4-8 PUFF
     Dates: start: 20101209, end: 20101222
  20. DOCETAXEL [Suspect]
     Indication: BREAST CANCER
     Dosage: LAST DOSE PRIOR TO SAE ON 03 FEB 2011
     Route: 042

REACTIONS (3)
  - FEBRILE NEUTROPENIA [None]
  - DIARRHOEA [None]
  - CLOSTRIDIUM DIFFICILE COLITIS [None]
